FAERS Safety Report 8215446-3 (Version None)
Quarter: 2012Q1

REPORT INFORMATION
  Report Type: 
  Country: None (occurrence: None)
  Receive Date: 20120314
  Receipt Date: 20120228
  Transmission Date: 20120608
  Serious: Yes (Death)
  Sender: FDA-Public Use
  Company Number: 2012-098

PATIENT
  Age: 58 Year
  Sex: Male

DRUGS (13)
  1. FAZACLO ODT [Suspect]
     Dosage: 600 MG, QD, ORAL
     Route: 048
     Dates: start: 20080722, end: 20120221
  2. NABUMETONE [Concomitant]
  3. NASONEX [Concomitant]
  4. ASTEPRO (AZELASTINE HYDROCHLORIDE) [Concomitant]
  5. FENOFIBRATE [Concomitant]
  6. SERTRALINE HYDROCHLORIDE [Concomitant]
  7. LORATADINE [Concomitant]
  8. CLOBETASOL (CLOBETASOL) [Concomitant]
  9. ADVAIR HFA [Concomitant]
  10. SINGULAIR [Concomitant]
  11. NAPROXEN [Concomitant]
  12. CLONAZEPAM [Concomitant]
  13. POLYETHYLENE GLYCOL [Concomitant]

REACTIONS (1)
  - DEATH [None]
